FAERS Safety Report 7127968-7 (Version None)
Quarter: 2010Q4

REPORT INFORMATION
  Report Type: 
  Country: None (occurrence: None)
  Receive Date: 20101130
  Receipt Date: 20101118
  Transmission Date: 20110411
  Serious: Yes (Death, Other)
  Sender: FDA-Public Use
  Company Number: GR-JNJFOC-20101106410

PATIENT
  Sex: Female

DRUGS (2)
  1. INFLIXIMAB [Suspect]
     Indication: INFLAMMATORY BOWEL DISEASE
     Dosage: 3 DOSES TOTAL
     Route: 042
  2. AZATHIOPRINE [Concomitant]

REACTIONS (4)
  - B-CELL LYMPHOMA [None]
  - BONE MARROW TRANSPLANT [None]
  - NO THERAPEUTIC RESPONSE [None]
  - SEPSIS [None]
